FAERS Safety Report 23742395 (Version 1)
Quarter: 2024Q2

REPORT INFORMATION
  Report Type: Report from Study
  Country: TW (occurrence: None)
  Receive Date: 20240415
  Receipt Date: 20240415
  Transmission Date: 20240716
  Serious: Yes (Death)
  Sender: FDA-Public Use
  Company Number: 2023A063090

PATIENT
  Age: 69 Year
  Sex: Male

DRUGS (1)
  1. IMFINZI [Suspect]
     Active Substance: DURVALUMAB
     Dosage: 1000.0MG UNKNOWN
     Route: 042
     Dates: start: 20221221

REACTIONS (2)
  - COVID-19 [Fatal]
  - Immunosuppression [Fatal]

NARRATIVE: CASE EVENT DATE: 20230216
